FAERS Safety Report 11994742 (Version 1)
Quarter: 2016Q1

REPORT INFORMATION
  Report Type: Spontaneous
  Country: US (occurrence: US)
  Receive Date: 20160203
  Receipt Date: 20160203
  Transmission Date: 20160526
  Serious: No
  Sender: FDA-Public Use
  Company Number: US-UCBSA-2015026068

PATIENT
  Sex: Female

DRUGS (1)
  1. LEVETIRACETAM. [Suspect]
     Active Substance: LEVETIRACETAM
     Indication: SEIZURE
     Dosage: 750 MG

REACTIONS (7)
  - Disturbance in attention [Unknown]
  - Feeling abnormal [Unknown]
  - Seizure [Unknown]
  - Fatigue [Unknown]
  - Thirst [Unknown]
  - Fall [Unknown]
  - Feeling drunk [Unknown]
